FAERS Safety Report 4380377-6 (Version None)
Quarter: 2004Q2

REPORT INFORMATION
  Report Type: 
  Country: None (occurrence: None)
  Receive Date: 20040614
  Receipt Date: 20040607
  Transmission Date: 20050107
  Serious: Yes (Hospitalization)
  Sender: FDA-Public Use
  Company Number: A044-002-005032

PATIENT
  Age: 92 Year
  Sex: Female

DRUGS (8)
  1. ARICEPT [Suspect]
     Indication: DEMENTIA ALZHEIMER'S TYPE
     Dosage: 10 MG, 1 IN 1 D, ORAL
     Route: 048
     Dates: start: 20021201, end: 20040429
  2. ZOLPIDEM (ZOLPIDEM) [Concomitant]
  3. TIANEPTINE (TIANEPTINE) [Concomitant]
  4. CLOPRIDOGREL (CLOPRIDOGREL) [Concomitant]
  5. NIFEDIPINE (NIFEDIPINE HYDROCHLRIDE) [Concomitant]
  6. FUROSEMIDE [Concomitant]
  7. OMEPRAZOLE [Concomitant]
  8. CALCIUM VIT. D3 [Concomitant]

REACTIONS (2)
  - DYSKINESIA [None]
  - MYOCLONUS [None]
